FAERS Safety Report 8325341-7 (Version None)
Quarter: 2012Q2

REPORT INFORMATION
  Report Type: 
  Country: None (occurrence: None)
  Receive Date: 20120501
  Receipt Date: 20120419
  Transmission Date: 20120825
  Serious: Yes (Other)
  Sender: FDA-Public Use
  Company Number: US-JNJFOC-20120410387

PATIENT
  Age: 68 Year
  Sex: Female

DRUGS (2)
  1. UNKNOWN MEDICATION [Concomitant]
     Indication: PRODUCT USED FOR UNKNOWN INDICATION
     Route: 065
  2. BENADRYL [Suspect]
     Indication: MULTIPLE ALLERGIES
     Route: 048

REACTIONS (3)
  - DYSPNOEA [None]
  - CHEST PAIN [None]
  - REACTION TO DRUG EXCIPIENTS [None]
